FAERS Safety Report 4889666-X (Version None)
Quarter: 2006Q1

REPORT INFORMATION
  Report Type: 
  Country: None (occurrence: None)
  Receive Date: 20060120
  Receipt Date: 20060112
  Transmission Date: 20060701
  Serious: Yes (Hospitalization, Other)
  Sender: FDA-Public Use
  Company Number: 2005-05-0741

PATIENT
  Age: 65 Year
  Sex: Male
  Weight: 69 kg

DRUGS (6)
  1. PEG-INTRON [Suspect]
     Indication: HEPATITIS C
     Dosage: 100-MCG QW SUBCUTANEOUS
     Route: 058
     Dates: start: 20041222, end: 20050425
  2. REBETOL [Suspect]
     Indication: HEPATITIS C
     Dosage: 800-400 MG* ORAL
     Dates: start: 20041222, end: 20050425
  3. REBETOL [Suspect]
     Indication: HEPATITIS C
     Dosage: 800-400 MG*ORAL
     Route: 048
     Dates: start: 20041222, end: 20050118
  4. REBETOL [Suspect]
     Indication: HEPATITIS C
     Dosage: 800-400 MG*ORAL
     Route: 048
     Dates: start: 20050119, end: 20050308
  5. REBETOL [Suspect]
     Indication: HEPATITIS C
     Dosage: 800-400 MG*ORAL
     Route: 048
     Dates: start: 20041222, end: 20050428
  6. REBETOL [Suspect]
     Indication: HEPATITIS C
     Dosage: 800-400 MG*ORAL
     Route: 048
     Dates: start: 20050322, end: 20050428

REACTIONS (12)
  - ABDOMINAL PAIN UPPER [None]
  - BACK PAIN [None]
  - COMPUTERISED TOMOGRAM THORAX ABNORMAL [None]
  - INFLAMMATION [None]
  - INTERVERTEBRAL DISC DISPLACEMENT [None]
  - INTERVERTEBRAL DISCITIS [None]
  - MYELITIS [None]
  - NEOPLASM MALIGNANT [None]
  - PARAPLEGIA [None]
  - PNEUMONIA [None]
  - SPINAL CORD INJURY THORACIC [None]
  - SPINAL DISORDER [None]
